FAERS Safety Report 5355804-8 (Version None)
Quarter: 2007Q2

REPORT INFORMATION
  Report Type: 
  Country: None (occurrence: None)
  Receive Date: 20070611
  Receipt Date: 20070611
  Transmission Date: 20071010
  Serious: Yes (Life-Threatening, Hospitalization)
  Sender: FDA-Public Use
  Company Number: None

PATIENT

DRUGS (2)
  1. HEPARIN [Suspect]
     Indication: ANTICOAGULANT THERAPY
     Dosage: DRIP  13CC/ HR DRIP IV
     Route: 041
     Dates: start: 20070603, end: 20070606
  2. HEPARIN [Suspect]
     Indication: COLONOSCOPY
     Dosage: DRIP  13CC/ HR DRIP IV
     Route: 041
     Dates: start: 20070603, end: 20070606

REACTIONS (4)
  - DIVERTICULITIS [None]
  - HAEMATOCHEZIA [None]
  - INTERNATIONAL NORMALISED RATIO INCREASED [None]
  - INTESTINAL POLYP [None]
